FAERS Safety Report 15642653 (Version 1)
Quarter: 2018Q4

REPORT INFORMATION
  Report Type: Spontaneous
  Country: US (occurrence: US)
  Receive Date: 20181121
  Receipt Date: 20181121
  Transmission Date: 20190205
  Serious: Yes (Other)
  Sender: FDA-Public Use
  Company Number: US-AMGEN-USASP2018164992

PATIENT
  Age: 27 Year
  Sex: Male
  Weight: 75.74 kg

DRUGS (2)
  1. PROCRIT [Suspect]
     Active Substance: ERYTHROPOIETIN
     Indication: PRODUCT USED FOR UNKNOWN INDICATION
     Dosage: 10000 UNIT, QMO
     Route: 065
     Dates: end: 2018
  2. PROCRIT [Suspect]
     Active Substance: ERYTHROPOIETIN
     Dosage: 10000 UNIT, QWK (ONCE WEEKLY FOR FOUR WEEKS)
     Route: 065
     Dates: start: 201806

REACTIONS (2)
  - Renal transplant [Unknown]
  - Parvovirus B19 infection [Unknown]

NARRATIVE: CASE EVENT DATE: 2018
